FAERS Safety Report 9301181 (Version 1)
Quarter: 2013Q2

REPORT INFORMATION
  Report Type: Spontaneous
  Country: US (occurrence: US)
  Receive Date: 20130521
  Receipt Date: 20130521
  Transmission Date: 20140414
  Serious: Yes (Other)
  Sender: FDA-Public Use
  Company Number: US-BRISTOL-MYERS SQUIBB COMPANY-17111501

PATIENT
  Age: 30 Year
  Sex: Female

DRUGS (1)
  1. BARACLUDE TABS [Suspect]
     Indication: HEPATITIS B
     Dosage: FIRST 0.5MG ONCE DAILY AFTER THAT 1TAB EVERY 2 DAYS

REACTIONS (2)
  - Hepatitis B DNA increased [Unknown]
  - Fatigue [Unknown]
